FAERS Safety Report 5134673-5 (Version None)
Quarter: 2006Q4

REPORT INFORMATION
  Report Type: 
  Country: None (occurrence: None)
  Receive Date: 20061025
  Receipt Date: 20061023
  Transmission Date: 20070319
  Serious: Yes (Other)
  Sender: FDA-Public Use
  Company Number: 2006-1574

PATIENT
  Age: 55 Year
  Sex: Female

DRUGS (4)
  1. SALBUHEXAL [Suspect]
     Dosage: 75MG THREE TIMES PER DAY
     Route: 055
     Dates: end: 20050101
  2. ALPRAZOLAM [Concomitant]
     Route: 065
  3. OMEPRAZOLE [Concomitant]
     Route: 065
  4. BRONCHICUM NATTERMAN ELIXIR [Concomitant]
     Route: 065

REACTIONS (1)
  - WEIGHT INCREASED [None]
